FAERS Safety Report 18185880 (Version 1)
Quarter: 2020Q3

REPORT INFORMATION
  Report Type: Spontaneous
  Country: US (occurrence: US)
  Receive Date: 20200822
  Receipt Date: 20200822
  Transmission Date: 20201103
  Serious: Yes (Life-Threatening, Hospitalization, Disabling)
  Sender: FDA-Public Use
  Company Number: None

PATIENT
  Age: 37 Year
  Sex: Female
  Weight: 148.5 kg

DRUGS (8)
  1. BLUMEN ADVANCED INSTANT HAND SANITIZER CLEAR [Suspect]
     Active Substance: ALCOHOL
     Indication: COVID-19 PROPHYLAXIS
     Route: 061
     Dates: start: 20200615, end: 20200718
  2. CETIRIZINE [Concomitant]
     Active Substance: CETIRIZINE HYDROCHLORIDE
  3. MELATONIN [Concomitant]
     Active Substance: MELATONIN
  4. FLONASE [Concomitant]
     Active Substance: FLUTICASONE PROPIONATE
  5. MAGNESIUM [Concomitant]
     Active Substance: MAGNESIUM
  6. ASTELIN [Concomitant]
     Active Substance: AZELASTINE HYDROCHLORIDE
  7. HUMALOG [Concomitant]
     Active Substance: INSULIN LISPRO
  8. LANTUS [Concomitant]
     Active Substance: INSULIN GLARGINE

REACTIONS (11)
  - Malaise [None]
  - Vertigo [None]
  - Coordination abnormal [None]
  - Dehydration [None]
  - Alcohol poisoning [None]
  - Migraine [None]
  - Headache [None]
  - Vomiting [None]
  - Recalled product administered [None]
  - Dizziness [None]
  - Metabolic acidosis [None]

NARRATIVE: CASE EVENT DATE: 20200626
